FAERS Safety Report 18567941 (Version 2)
Quarter: 2021Q2

REPORT INFORMATION
  Report Type: Spontaneous
  Country: PL (occurrence: PL)
  Receive Date: 20201202
  Receipt Date: 20210405
  Transmission Date: 20210717
  Serious: Yes (Death, Hospitalization, Other)
  Sender: FDA-Public Use
  Company Number: PL-CELLTRION INC.-2020PL033112

PATIENT

DRUGS (28)
  1. RITUXIMAB (UNKNOWN) [Suspect]
     Active Substance: RITUXIMAB
     Indication: CHRONIC LYMPHOCYTIC LEUKAEMIA
     Dosage: UNK
     Route: 065
     Dates: start: 201311
  2. ENDOXAN [CYCLOPHOSPHAMIDE] [Suspect]
     Active Substance: CYCLOPHOSPHAMIDE
     Indication: RICHTER^S SYNDROME
     Dosage: UNK
     Route: 065
     Dates: start: 201401
  3. VINCRISTINE [Suspect]
     Active Substance: VINCRISTINE
     Indication: RICHTER^S SYNDROME
     Dosage: 2 CYCLES
     Route: 065
     Dates: start: 201311, end: 201312
  4. PREDNISONE. [Suspect]
     Active Substance: PREDNISONE
     Indication: RICHTER^S SYNDROME
     Dosage: 2 CYCLES
     Route: 065
     Dates: start: 201311, end: 201312
  5. DOXORUBICIN [Suspect]
     Active Substance: DOXORUBICIN
     Indication: RICHTER^S SYNDROME
     Dosage: FIRST LINE OF POLYCHEMOTHERAPY
     Route: 065
     Dates: start: 20180226
  6. BENDAMUSTINE [Suspect]
     Active Substance: BENDAMUSTINE
     Indication: CHRONIC LYMPHOCYTIC LEUKAEMIA
  7. DEXAMETHASONE. [Suspect]
     Active Substance: DEXAMETHASONE
     Indication: CHRONIC LYMPHOCYTIC LEUKAEMIA
     Dosage: SECOND LINE OF POLYCHEMOTHERAPY
     Route: 065
     Dates: start: 201807
  8. BENDAMUSTINE [Suspect]
     Active Substance: BENDAMUSTINE
     Indication: RICHTER^S SYNDROME
     Route: 065
  9. DEXAMETHASONE. [Suspect]
     Active Substance: DEXAMETHASONE
     Indication: RICHTER^S SYNDROME
  10. FILGRASTIM [Concomitant]
     Active Substance: FILGRASTIM
  11. CISPLATIN. [Suspect]
     Active Substance: CISPLATIN
     Indication: CHRONIC LYMPHOCYTIC LEUKAEMIA
     Dosage: SECOND LINE OF POLYCHEMOTHERAPY
     Route: 065
     Dates: start: 201807
  12. FLUDARABINE [Suspect]
     Active Substance: FLUDARABINE PHOSPHATE
     Indication: CHRONIC LYMPHOCYTIC LEUKAEMIA
     Dosage: UNK
     Route: 065
     Dates: start: 201401
  13. CYTARABINE. [Suspect]
     Active Substance: CYTARABINE
     Indication: RICHTER^S SYNDROME
     Dosage: SECOND LINE OF POLYCHEMOTHERAPY
     Route: 065
     Dates: start: 201807
  14. CYTARABINE. [Suspect]
     Active Substance: CYTARABINE
     Indication: CHRONIC LYMPHOCYTIC LEUKAEMIA
  15. VINCRISTINE [Suspect]
     Active Substance: VINCRISTINE
     Indication: CHRONIC LYMPHOCYTIC LEUKAEMIA
     Dosage: FIRST LINE OF POLYCHEMOTHERAPY
     Route: 065
     Dates: start: 20180226
  16. G?CSF [Concomitant]
     Active Substance: GRANULOCYTE COLONY-STIMULATING FACTOR NOS
  17. RITUXIMAB (UNKNOWN) [Suspect]
     Active Substance: RITUXIMAB
     Dosage: UNK
     Route: 065
     Dates: start: 201401
  18. PREDNISONE. [Suspect]
     Active Substance: PREDNISONE
     Indication: CHRONIC LYMPHOCYTIC LEUKAEMIA
     Dosage: FIRST LINE OF POLYCHEMOTHERAPY
     Route: 065
     Dates: start: 20180226
  19. RITUXIMAB (UNKNOWN) [Suspect]
     Active Substance: RITUXIMAB
     Dosage: FIRST LINE OF POLYCHEMOTHERAPY
     Route: 065
     Dates: start: 20180226
  20. CYCLOPHOSPHAMIDE. [Suspect]
     Active Substance: CYCLOPHOSPHAMIDE
     Indication: RICHTER^S SYNDROME
  21. CISPLATIN. [Suspect]
     Active Substance: CISPLATIN
     Indication: RICHTER^S SYNDROME
  22. DOXORUBICIN [Suspect]
     Active Substance: DOXORUBICIN
     Indication: CHRONIC LYMPHOCYTIC LEUKAEMIA
  23. BENDAMUSTINE HYDROCHLORIDE. [Suspect]
     Active Substance: BENDAMUSTINE HYDROCHLORIDE
     Indication: CHRONIC LYMPHOCYTIC LEUKAEMIA
     Route: 065
  24. CYCLOPHOSPHAMIDE. [Suspect]
     Active Substance: CYCLOPHOSPHAMIDE
     Indication: CHRONIC LYMPHOCYTIC LEUKAEMIA
     Dosage: 2 CYCLES
     Route: 065
     Dates: start: 201311, end: 201312
  25. FLUDARABINE [Suspect]
     Active Substance: FLUDARABINE PHOSPHATE
     Indication: RICHTER^S SYNDROME
  26. DARBEPOETIN ALFA [Concomitant]
     Active Substance: DARBEPOETIN ALFA
  27. RITUXIMAB (UNKNOWN) [Suspect]
     Active Substance: RITUXIMAB
     Indication: RICHTER^S SYNDROME
     Dosage: UNK
     Route: 065
     Dates: start: 201312
  28. ENDOXAN [CYCLOPHOSPHAMIDE] [Suspect]
     Active Substance: CYCLOPHOSPHAMIDE
     Indication: CHRONIC LYMPHOCYTIC LEUKAEMIA
     Dosage: FIRST LINE OF POLYCHEMOTHERAPY
     Route: 065
     Dates: start: 20180226

REACTIONS (7)
  - Subcutaneous abscess [Unknown]
  - Infection [Unknown]
  - Disease progression [Unknown]
  - Death [Fatal]
  - Off label use [Unknown]
  - Sepsis [Recovering/Resolving]
  - Richter^s syndrome [Unknown]

NARRATIVE: CASE EVENT DATE: 201902
